FAERS Safety Report 4650721-0 (Version None)
Quarter: 2005Q2

REPORT INFORMATION
  Report Type: 
  Country: None (occurrence: None)
  Receive Date: 20050429
  Receipt Date: 20050429
  Transmission Date: 20051028
  Serious: No
  Sender: FDA-Public Use
  Company Number: None

PATIENT
  Sex: Female
  Weight: 76.6579 kg

DRUGS (4)
  1. LIPITOR [Suspect]
     Indication: CORONARY ARTERY DISEASE
     Dosage: ONE   DAILY   ORAL
     Route: 048
     Dates: start: 19950101, end: 20050101
  2. LIPITOR [Suspect]
     Indication: HYPERLIPIDAEMIA
     Dosage: ONE   DAILY   ORAL
     Route: 048
     Dates: start: 19950101, end: 20050101
  3. ZETIA [Suspect]
     Indication: CORONARY ARTERY DISEASE
     Dosage: ONE   DAILY    ORAL
     Route: 048
     Dates: start: 20030101, end: 20040729
  4. ZETIA [Suspect]
     Indication: HYPERLIPIDAEMIA
     Dosage: ONE   DAILY    ORAL
     Route: 048
     Dates: start: 20030101, end: 20040729

REACTIONS (5)
  - ALANINE AMINOTRANSFERASE INCREASED [None]
  - ANTINUCLEAR ANTIBODY POSITIVE [None]
  - ASPARTATE AMINOTRANSFERASE INCREASED [None]
  - COUGH [None]
  - PORTAL TRIADITIS [None]
